FAERS Safety Report 17432753 (Version 1)
Quarter: 2020Q1

REPORT INFORMATION
  Report Type: Spontaneous
  Country: IT (occurrence: IT)
  Receive Date: 20200218
  Receipt Date: 20200218
  Transmission Date: 20200409
  Serious: Yes (Hospitalization)
  Sender: FDA-Public Use
  Company Number: IT-AMGEN-ITASP2020026998

PATIENT
  Age: 47 Year
  Sex: Male
  Weight: 73 kg

DRUGS (2)
  1. KYPROLIS [Suspect]
     Active Substance: CARFILZOMIB
     Indication: PLASMA CELL MYELOMA
     Dosage: 27 MILLIGRAM/SQ. METER, CYCLICAL
     Route: 041
     Dates: start: 20190521
  2. SOLDESAM [Suspect]
     Active Substance: DEXAMETHASONE
     Indication: PLASMA CELL MYELOMA
     Dosage: 20 MILLIGRAM, QWK
     Route: 048
     Dates: start: 20190521

REACTIONS (2)
  - Tenosynovitis [Not Recovered/Not Resolved]
  - Gonococcal infection [Not Recovered/Not Resolved]

NARRATIVE: CASE EVENT DATE: 20200203
